FAERS Safety Report 5309741-5 (Version None)
Quarter: 2007Q2

REPORT INFORMATION
  Report Type: 
  Country: None (occurrence: None)
  Receive Date: 20070427
  Receipt Date: 20060310
  Transmission Date: 20071010
  Serious: No
  Sender: FDA-Public Use
  Company Number: US-GLAXOSMITHKLINE-A0597126A

PATIENT
  Age: 92 Year
  Sex: Female

DRUGS (3)
  1. ZOFRAN [Suspect]
     Indication: DRUG USE FOR UNKNOWN INDICATION
     Dosage: 4MG PER DAY
     Route: 048
     Dates: start: 20060301
  2. LASIX [Concomitant]
  3. ALLOPURINOL [Concomitant]

REACTIONS (1)
  - DYSARTHRIA [None]
